FAERS Safety Report 26140261 (Version 1)
Quarter: 2025Q4

REPORT INFORMATION
  Report Type: Spontaneous
  Country: US (occurrence: None)
  Receive Date: 20251209
  Receipt Date: 20251209
  Transmission Date: 20260117
  Serious: Yes (Life-Threatening, Hospitalization)
  Sender: FDA-CTU
  Company Number: None

PATIENT
  Age: 88 Year
  Sex: Male
  Weight: 69.75 kg

DRUGS (3)
  1. LIPITOR [Suspect]
     Active Substance: ATORVASTATIN CALCIUM
     Indication: Investigation
     Dosage: OTHER QUANTITY : 1 TABLET(S);?FREQUENCY : DAILY;
     Route: 048
  2. UNSPECIFIED INGREDIENT [Concomitant]
     Active Substance: UNSPECIFIED INGREDIENT
  3. IRON [Concomitant]
     Active Substance: IRON

REACTIONS (11)
  - Anaemia [None]
  - Myocardial infarction [None]
  - Bowel movement irregularity [None]
  - Haematochezia [None]
  - Asthenia [None]
  - Dyspnoea [None]
  - Chest pain [None]
  - Rectal haemorrhage [None]
  - Drug monitoring procedure not performed [None]
  - Constipation [None]
  - Therapeutic product effect incomplete [None]

NARRATIVE: CASE EVENT DATE: 20251125
